FAERS Safety Report 4999120-2 (Version None)
Quarter: 2006Q2

REPORT INFORMATION
  Report Type: 
  Country: None (occurrence: None)
  Receive Date: 20060509
  Receipt Date: 20060425
  Transmission Date: 20061013
  Serious: Yes (Hospitalization)
  Sender: FDA-Public Use
  Company Number: US200603002616

PATIENT
  Age: 23 Year
  Sex: Female

DRUGS (4)
  1. PROZAC [Suspect]
     Dosage: SEE IMAGE
     Route: 048
     Dates: start: 20060101
  2. PROZAC [Suspect]
     Dosage: SEE IMAGE
     Route: 048
     Dates: start: 20060201
  3. PREDNISONE TAB [Concomitant]
  4. DEPO-PROVERA [Concomitant]

REACTIONS (12)
  - DIPLOPIA [None]
  - DYSARTHRIA [None]
  - EYE DISORDER [None]
  - FACIAL PALSY [None]
  - HEAD INJURY [None]
  - HEADACHE [None]
  - HEMIPARESIS [None]
  - MENTAL STATUS CHANGES [None]
  - MIGRAINE [None]
  - SENSORY LOSS [None]
  - STATUS EPILEPTICUS [None]
  - VISION BLURRED [None]
